FAERS Safety Report 6983834-9 (Version None)
Quarter: 2010Q3

REPORT INFORMATION
  Report Type: 
  Country: None (occurrence: None)
  Receive Date: 20100914
  Receipt Date: 20090416
  Transmission Date: 20110219
  Serious: Yes (Hospitalization, Other)
  Sender: FDA-Public Use
  Company Number: US-WYE-H08189309

PATIENT
  Age: 60 Year
  Sex: Female
  Weight: 105.7 kg

DRUGS (2)
  1. TIGECYCLINE [Suspect]
     Indication: STAPHYLOCOCCAL INFECTION
     Dosage: 100 MG LOADING DOSE FOLLOWED BY 50 MG EVERY 12 HOURS
     Route: 042
     Dates: start: 20080925, end: 20081001
  2. TIGECYCLINE [Suspect]
     Indication: ABDOMINAL INFECTION

REACTIONS (1)
  - PANCREATITIS [None]
